FAERS Safety Report 6500332-7 (Version None)
Quarter: 2009Q4

REPORT INFORMATION
  Report Type: 
  Country: None (occurrence: None)
  Receive Date: 20091216
  Receipt Date: 20091202
  Transmission Date: 20100525
  Serious: Yes (Other)
  Sender: FDA-Public Use
  Company Number: US-BAYER-200917302BCC

PATIENT
  Sex: Male

DRUGS (1)
  1. BACTINE PAIN RELIEVING CLEANSING SPRAY [Suspect]
     Indication: EAR DISORDER
     Route: 061

REACTIONS (1)
  - TYMPANIC MEMBRANE PERFORATION [None]
